FAERS Safety Report 8412905-5 (Version None)
Quarter: 2012Q2

REPORT INFORMATION
  Report Type: 
  Country: None (occurrence: None)
  Receive Date: 20120605
  Receipt Date: 20120525
  Transmission Date: 20120825
  Serious: No
  Sender: FDA-Public Use
  Company Number: US-AMGEN-USASP2012033104

PATIENT
  Age: 55 Year
  Sex: Female

DRUGS (4)
  1. HUMIRA [Concomitant]
  2. SULFASALAZINE [Concomitant]
     Dosage: UNK
     Dates: start: 20070101
  3. METHOTREXATE [Concomitant]
     Dosage: UNK
     Dates: start: 20070101
  4. ENBREL [Suspect]
     Indication: RHEUMATOID ARTHRITIS
     Dosage: 50 MG, QWK
     Dates: start: 20070701

REACTIONS (4)
  - APPLICATION SITE PRURITUS [None]
  - RHEUMATOID ARTHRITIS [None]
  - APPLICATION SITE URTICARIA [None]
  - JOINT SWELLING [None]
